FAERS Safety Report 4746991-0 (Version None)
Quarter: 2005Q3

REPORT INFORMATION
  Report Type: 
  Country: None (occurrence: None)
  Receive Date: 20050817
  Receipt Date: 20050805
  Transmission Date: 20060218
  Serious: Yes (Life-Threatening, Other)
  Sender: FDA-Public Use
  Company Number: JP-JNJFOC-20050705244

PATIENT
  Sex: Female
  Weight: 56 kg

DRUGS (7)
  1. CRAVIT [Suspect]
     Indication: BRONCHITIS
     Route: 048
     Dates: start: 20050719, end: 20050719
  2. NIFLAN [Suspect]
     Indication: DRUG USE FOR UNKNOWN INDICATION
     Route: 065
     Dates: start: 20050719, end: 20050719
  3. KOLANTYL [Concomitant]
     Route: 048
     Dates: start: 20050719, end: 20050719
  4. KOLANTYL [Concomitant]
     Route: 048
     Dates: start: 20050719, end: 20050719
  5. KOLANTYL [Concomitant]
     Route: 048
     Dates: start: 20050719, end: 20050719
  6. KOLANTYL [Concomitant]
     Route: 048
     Dates: start: 20050719, end: 20050719
  7. VOLTAREN [Concomitant]
     Route: 065

REACTIONS (6)
  - ANAPHYLACTIC SHOCK [None]
  - DISSEMINATED INTRAVASCULAR COAGULATION [None]
  - PULMONARY EMBOLISM [None]
  - RASH GENERALISED [None]
  - RESPIRATORY FAILURE [None]
  - URTICARIA GENERALISED [None]
